FAERS Safety Report 8051530-5 (Version None)
Quarter: 2012Q1

REPORT INFORMATION
  Report Type: 
  Country: None (occurrence: None)
  Receive Date: 20120117
  Receipt Date: 20120111
  Transmission Date: 20120608
  Serious: No
  Sender: FDA-Public Use
  Company Number: US-BAYER-2012-005026

PATIENT
  Age: 84 Year
  Sex: Female
  Weight: 48 kg

DRUGS (3)
  1. VITAMIN TAB [Concomitant]
  2. CALTRATE [CALCIUM CARBONATE] [Concomitant]
  3. ALEVE (CAPLET) [Suspect]
     Dosage: 1 TAB USED ONLY ONE TIME
     Route: 048
     Dates: start: 20120101, end: 20120101

REACTIONS (1)
  - PAIN [None]
